FAERS Safety Report 6697648-0 (Version None)
Quarter: 2010Q2

REPORT INFORMATION
  Report Type: 
  Country: None (occurrence: None)
  Receive Date: 20100426
  Receipt Date: 20100416
  Transmission Date: 20101027
  Serious: Yes (Hospitalization, Disabling, Other)
  Sender: FDA-Public Use
  Company Number: US-ABBOTT-10P-163-0638919-00

PATIENT
  Sex: Female

DRUGS (3)
  1. VICODIN [Suspect]
     Indication: TEMPOROMANDIBULAR JOINT SYNDROME
     Dates: start: 20100312
  2. VICODIN [Suspect]
     Indication: PAIN
  3. BETASERON [Suspect]
     Indication: RELAPSING-REMITTING MULTIPLE SCLEROSIS
     Dosage: 8MIU DAILY
     Route: 058
     Dates: start: 20090629

REACTIONS (4)
  - CONSTIPATION [None]
  - MOBILITY DECREASED [None]
  - MUSCLE SPASMS [None]
  - PAIN [None]
